FAERS Safety Report 10236420 (Version 1)
Quarter: 2014Q2

REPORT INFORMATION
  Report Type: Spontaneous
  Country: US (occurrence: US)
  Receive Date: 20140613
  Receipt Date: 20140613
  Transmission Date: 20141212
  Serious: Yes (Other)
  Sender: FDA-Public Use
  Company Number: US-ACTAVIS-2014-13270

PATIENT
  Age: 6 Week
  Sex: Female

DRUGS (1)
  1. DOXYCYCLINE (WATSON LABORATORIES) [Suspect]
     Indication: SCLEROTHERAPY
     Dosage: 80 MG, DAILY, 10MG/ML
     Route: 065

REACTIONS (2)
  - Horner^s syndrome [Recovering/Resolving]
  - Aspiration [Recovered/Resolved]
